FAERS Safety Report 6015210-X (Version None)
Quarter: 2008Q4

REPORT INFORMATION
  Report Type: 
  Country: None (occurrence: None)
  Receive Date: 20081219
  Receipt Date: 20081219
  Transmission Date: 20090506
  Serious: Yes (Other)
  Sender: FDA-Public Use
  Company Number: None

PATIENT
  Age: 31 Month
  Sex: Female
  Weight: 12.5 kg

DRUGS (8)
  1. MULTI-VITAMINS [Suspect]
     Indication: MALNUTRITION
     Dosage: CONTINUOUS IV
     Route: 042
     Dates: start: 20081102, end: 20081103
  2. ALBUMIN (HUMAN) [Concomitant]
  3. ACETAMINOPHEN [Concomitant]
  4. D10W [Concomitant]
  5. DIPHENHYDRAMINE HCL [Concomitant]
  6. ESOMEPRAZOLE MAGNESIUM [Concomitant]
  7. VANCOMYCIN [Concomitant]
  8. HEPARIN [Concomitant]

REACTIONS (2)
  - DRUG HYPERSENSITIVITY [None]
  - INFUSION RELATED REACTION [None]
